FAERS Safety Report 12841468 (Version 6)
Quarter: 2017Q3

REPORT INFORMATION
  Report Type: Report from Study
  Country: CA (occurrence: CA)
  Receive Date: 20161012
  Receipt Date: 20170908
  Transmission Date: 20171127
  Serious: Yes (Hospitalization)
  Sender: FDA-Public Use
  Company Number: CA-INCYTE CORPORATION-2016IN004744

PATIENT

DRUGS (6)
  1. ASPIRIN//ACETYLSALICYLIC ACID [Concomitant]
     Active Substance: ASPIRIN
     Indication: PRODUCT USED FOR UNKNOWN INDICATION
     Route: 065
  2. JAKAVI [Suspect]
     Active Substance: RUXOLITINIB
     Indication: MYELOFIBROSIS
     Dosage: 15 MG, BID
     Route: 048
     Dates: start: 20160706
  3. EPREX [Concomitant]
     Active Substance: ERYTHROPOIETIN
     Indication: PRODUCT USED FOR UNKNOWN INDICATION
     Route: 005
  4. EPREX [Concomitant]
     Active Substance: ERYTHROPOIETIN
     Indication: THROMBOCYTOPENIA
     Route: 005
  5. EPREX [Concomitant]
     Active Substance: ERYTHROPOIETIN
     Route: 005
  6. JAKAVI [Suspect]
     Active Substance: RUXOLITINIB
     Dosage: 10 MG, BID
     Route: 048
     Dates: end: 20170704

REACTIONS (16)
  - Movement disorder [Recovering/Resolving]
  - Asthenia [Recovering/Resolving]
  - Fatigue [Not Recovered/Not Resolved]
  - Eating disorder [Recovering/Resolving]
  - Malaise [Unknown]
  - Dizziness [Unknown]
  - Chest discomfort [Recovering/Resolving]
  - Chest discomfort [Recovered/Resolved]
  - Feeling abnormal [Unknown]
  - Night sweats [Recovering/Resolving]
  - Drug ineffective [Unknown]
  - Haemoglobin decreased [Recovering/Resolving]
  - Chest discomfort [Recovered/Resolved]
  - Discomfort [Recovering/Resolving]
  - Contusion [Unknown]
  - Platelet count decreased [Unknown]

NARRATIVE: CASE EVENT DATE: 20160809
